FAERS Safety Report 7911504-9 (Version None)
Quarter: 2011Q4

REPORT INFORMATION
  Report Type: 
  Country: None (occurrence: None)
  Receive Date: 20111114
  Receipt Date: 20111109
  Transmission Date: 20120403
  Serious: Yes (Hospitalization)
  Sender: FDA-Public Use
  Company Number: CH-BAYER-2011-108208

PATIENT
  Age: 63 Year
  Sex: Male

DRUGS (11)
  1. CIPROFLOXACIN [Interacting]
     Indication: BACTERIAL INFECTION
     Dosage: 500 MG, BID
     Route: 048
     Dates: start: 20110810, end: 20110922
  2. METOPROLOL SUCCINATE [Concomitant]
     Dosage: 50 MG, QD
     Route: 048
  3. ASPIRIN [Interacting]
     Indication: ATRIAL FLUTTER
     Dosage: 100 MG, QD
     Route: 048
  4. ENALAPRIL MALEATE [Concomitant]
     Dosage: 5 MG, BID
     Route: 048
  5. NOVOMIX [INSULIN ASPART] [Concomitant]
  6. CORDARONE [Interacting]
     Dosage: 200 MG, QD
     Route: 048
  7. CRESTOR [Suspect]
     Dosage: 10 MG, QD
     Route: 048
  8. INSULATARD NPH HUMAN [Concomitant]
  9. SINTROM [Interacting]
     Indication: ATRIAL FLUTTER
  10. SINTROM [Interacting]
     Indication: ATRIAL FIBRILLATION
     Dosage: UNK
     Route: 048
     Dates: start: 20110815, end: 20110921
  11. TORSEMIDE [Concomitant]
     Dosage: 40 MG, QD
     Route: 048

REACTIONS (3)
  - HYPOCHROMIC ANAEMIA [None]
  - INTERNATIONAL NORMALISED RATIO INCREASED [None]
  - GASTROINTESTINAL HAEMORRHAGE [None]
